FAERS Safety Report 9902465 (Version 1)
Quarter: 2014Q1

REPORT INFORMATION
  Report Type: Spontaneous
  Country: US (occurrence: US)
  Receive Date: 20140217
  Receipt Date: 20140217
  Transmission Date: 20141002
  Serious: Yes (Hospitalization)
  Sender: FDA-Public Use
  Company Number: US-AMGEN-USASP2014010998

PATIENT
  Age: 18 Year
  Sex: Female

DRUGS (1)
  1. NEUPOGEN [Suspect]
     Indication: CYCLIC NEUTROPENIA
     Dosage: 210 MCG, ONCE DAILY
     Route: 065
     Dates: start: 2007

REACTIONS (2)
  - Suicidal behaviour [Unknown]
  - Treatment noncompliance [Unknown]
